FAERS Safety Report 13594774 (Version 1)
Quarter: 2017Q2

REPORT INFORMATION
  Report Type: Other
  Country: GB (occurrence: US)
  Receive Date: 20170530
  Receipt Date: 20170530
  Transmission Date: 20170830
  Serious: Yes (Life-Threatening, Other)
  Sender: FDA-Public Use
  Company Number: US-INTERNATIONAL MEDICATION SYSTEMS, LIMITED-2021405

PATIENT
  Age: 74 Year
  Sex: Male
  Weight: 76 kg

DRUGS (6)
  1. FENTANYL. [Suspect]
     Active Substance: FENTANYL
     Route: 042
  2. ZICONOTIDE [Concomitant]
     Active Substance: ZICONOTIDE
     Route: 037
  3. METOPROLOL. [Suspect]
     Active Substance: METOPROLOL
  4. PROPOFOL. [Suspect]
     Active Substance: PROPOFOL
     Route: 042
  5. LIDOCAINE. [Suspect]
     Active Substance: LIDOCAINE
     Indication: GENERAL ANAESTHESIA
     Route: 042
  6. SUXAMETHONIUM [Suspect]
     Active Substance: SUCCINYLCHOLINE
     Route: 042

REACTIONS (1)
  - Vasoplegia syndrome [Unknown]
